FAERS Safety Report 5807173-4 (Version None)
Quarter: 2008Q3

REPORT INFORMATION
  Report Type: 
  Country: None (occurrence: None)
  Receive Date: 20080711
  Receipt Date: 20080702
  Transmission Date: 20090109
  Serious: Yes (Other)
  Sender: FDA-Public Use
  Company Number: A0735639A

PATIENT
  Age: 51 Year
  Sex: Female
  Weight: 119 kg

DRUGS (6)
  1. AVANDAMET [Suspect]
     Indication: DIABETES MELLITUS
     Route: 048
     Dates: start: 20031107, end: 20080101
  2. GLYBURIDE [Concomitant]
     Indication: DIABETES MELLITUS
     Dosage: 10MG TWICE PER DAY
     Dates: start: 19980101
  3. PRAVACHOL [Concomitant]
     Indication: LOW DENSITY LIPOPROTEIN INCREASED
     Dosage: 40MG PER DAY
     Dates: start: 20040101
  4. NASACORT [Concomitant]
     Indication: RHINITIS
     Dates: start: 20030101
  5. MOTRIN [Concomitant]
     Indication: ARTHRALGIA
     Dosage: 600MG AT NIGHT
  6. DICETEL [Concomitant]
     Dosage: 100MG THREE TIMES PER DAY
     Dates: start: 20010101

REACTIONS (2)
  - FALL [None]
  - WRIST FRACTURE [None]
